FAERS Safety Report 7712579-2 (Version None)
Quarter: 2011Q3

REPORT INFORMATION
  Report Type: 
  Country: None (occurrence: None)
  Receive Date: 20110826
  Receipt Date: 20110817
  Transmission Date: 20111222
  Serious: Yes (Death, Hospitalization)
  Sender: FDA-Public Use
  Company Number: AU-CELGENEUS-008-21880-11011580

PATIENT
  Sex: Female

DRUGS (4)
  1. REVLIMID [Suspect]
     Indication: MULTIPLE MYELOMA
     Route: 048
     Dates: start: 20110113, end: 20110223
  2. REVLIMID [Suspect]
     Dosage: REDUCED DOSE
     Route: 048
     Dates: start: 20110408, end: 20110411
  3. DEXAMETHASONE [Suspect]
     Indication: MULTIPLE MYELOMA
     Route: 065
     Dates: start: 20110113
  4. DEXAMETHASONE [Suspect]
     Dosage: REDUCED DOSE
     Route: 065
     Dates: start: 20110408

REACTIONS (3)
  - SEPTIC SHOCK [None]
  - CLOSTRIDIUM COLITIS [None]
  - AMYLOIDOSIS [None]
